FAERS Safety Report 9889024 (Version 2)
Quarter: 2014Q1

REPORT INFORMATION
  Report Type: Spontaneous
  Country: GB (occurrence: GB)
  Receive Date: 20140211
  Receipt Date: 20140224
  Transmission Date: 20141002
  Serious: Yes (Death, Hospitalization, Other)
  Sender: FDA-Public Use
  Company Number: GB-B.I. PHARMACEUTICALS,INC./RIDGEFIELD-2014-BI-05847UK

PATIENT
  Age: 69 Year
  Sex: Male

DRUGS (15)
  1. PRADAXA [Suspect]
     Indication: CEREBROVASCULAR ACCIDENT PROPHYLAXIS
     Dosage: 300 MG
     Route: 048
     Dates: start: 20140117, end: 20140120
  2. PRADAXA [Suspect]
     Indication: ATRIAL FIBRILLATION
     Dosage: 220 MG
     Route: 048
     Dates: start: 20140124, end: 20140130
  3. AMIODARONE [Concomitant]
     Indication: ATRIAL FIBRILLATION
     Dosage: 200 MG
     Route: 048
     Dates: start: 20140113, end: 20140130
  4. DIGOXIN [Concomitant]
     Indication: ATRIAL FIBRILLATION
     Dosage: 125 MCG
     Route: 048
     Dates: start: 20140124, end: 20140130
  5. BISOPROLOL [Concomitant]
     Indication: ATRIAL FIBRILLATION
     Dosage: 10 MG
     Route: 048
     Dates: start: 20140115, end: 20140130
  6. BISOPROLOL [Concomitant]
     Dosage: 15 MG
     Route: 048
  7. THIAMINE [Concomitant]
     Indication: ALCOHOLIC
     Route: 048
     Dates: start: 20140113, end: 20140131
  8. VITAMIN B COMPOUND [Concomitant]
     Indication: ALCOHOLIC
     Route: 048
     Dates: start: 20140111, end: 20140130
  9. FUROSEMIDE [Concomitant]
     Indication: OEDEMA
     Dosage: 40 MG
     Route: 048
     Dates: start: 20140113, end: 20140130
  10. CLEXANE 40 MG/ 0.4 ML [Concomitant]
     Indication: THROMBOSIS PROPHYLAXIS
     Dosage: 40 MG
     Route: 058
     Dates: start: 20140113, end: 20140116
  11. ARIXTRA 2.5MG/0.5ML [Concomitant]
     Indication: ACUTE CORONARY SYNDROME
     Dosage: 2.5 MG
     Route: 058
     Dates: start: 20140121
  12. RAMIPRIL [Concomitant]
     Indication: MYOCARDIAL INFARCTION
     Dosage: 2.5 MG
     Route: 048
     Dates: start: 20140121, end: 20140130
  13. ASPIRIN [Concomitant]
     Indication: MYOCARDIAL INFARCTION
     Dosage: 75 MG
     Route: 048
     Dates: start: 20140120, end: 20140130
  14. ATORVASTATIN [Concomitant]
     Indication: HYPERCHOLESTEROLAEMIA
     Dosage: 40 MG
     Route: 048
     Dates: start: 20140120, end: 20140130
  15. CLOPIDOGREL [Concomitant]
     Dosage: 75 MG
     Route: 048
     Dates: start: 20140122, end: 20140130

REACTIONS (3)
  - Myocardial infarction [Fatal]
  - Acute myocardial infarction [Recovered/Resolved with Sequelae]
  - Renal failure acute [Unknown]
